FAERS Safety Report 7019813-5 (Version None)
Quarter: 2010Q3

REPORT INFORMATION
  Report Type: 
  Country: None (occurrence: None)
  Receive Date: 20100929
  Receipt Date: 20100917
  Transmission Date: 20110219
  Serious: Yes (Hospitalization)
  Sender: FDA-Public Use
  Company Number: US-ELI_LILLY_AND_COMPANY-US201003001565

PATIENT
  Sex: Male
  Weight: 74.376 kg

DRUGS (19)
  1. PEMETREXED [Suspect]
     Indication: NON-SMALL CELL LUNG CANCER
     Dosage: 500 MG/M2, OTHER
     Route: 042
     Dates: start: 20100219, end: 20100318
  2. CARBOPLATIN [Suspect]
     Indication: NON-SMALL CELL LUNG CANCER
     Dosage: 6 D/F, OTHER
     Route: 042
     Dates: start: 20100219, end: 20100318
  3. BEVACIZUMAB [Suspect]
     Indication: NON-SMALL CELL LUNG CANCER
     Dosage: 15 MG/KG, OTHER
     Route: 042
     Dates: start: 20100219, end: 20100318
  4. NEULASTA [Concomitant]
     Indication: PROPHYLAXIS
     Dosage: UNK, OTHER
     Route: 058
     Dates: start: 20100222
  5. FOLIC ACID [Concomitant]
     Indication: PROPHYLAXIS
     Dosage: 1 MG, DAILY (1/D)
     Dates: start: 20100212
  6. DEXAMETHASONE [Concomitant]
     Indication: PROPHYLAXIS
     Dosage: 4 MG, OTHER
     Dates: start: 20100218
  7. PREDNISONE [Concomitant]
     Indication: PROPHYLAXIS
     Dates: start: 20100216
  8. BENADRYL [Concomitant]
     Indication: PROPHYLAXIS
     Dosage: 50 MG, UNK
     Dates: start: 20100216
  9. MOTRIN [Concomitant]
     Indication: PAIN
     Dosage: 200 MG, DAILY (1/D)
     Route: 048
     Dates: start: 20100217
  10. COMPAZINE [Concomitant]
     Indication: NAUSEA
     Dosage: 5 MG, 3/D
     Route: 048
     Dates: start: 20100218
  11. ATIVAN [Concomitant]
     Indication: ANXIETY
     Dosage: 0.5 MG, AS NEEDED
     Route: 048
  12. ATENOLOL [Concomitant]
     Indication: HYPERTENSION
     Dosage: 50 MG, 2/D
     Route: 048
     Dates: start: 20020101
  13. HYDROCHLOROTHIAZIDE [Concomitant]
     Indication: HYPERTENSION
     Dosage: 25 MG, DAILY (1/D)
     Route: 048
     Dates: start: 20020101
  14. LISINOPRIL [Concomitant]
     Indication: HYPERTENSION
     Dosage: 10 MG, UNK
     Dates: start: 20020101, end: 20100301
  15. M.V.I. [Concomitant]
     Indication: SUPPLEMENTATION THERAPY
     Dosage: 1 D/F, DAILY (1/D)
     Route: 048
     Dates: start: 19950101
  16. VITAMIN E [Concomitant]
     Indication: SUPPLEMENTATION THERAPY
     Dosage: 1 D/F, DAILY (1/D)
     Route: 048
     Dates: start: 19950101
  17. ASPIRIN [Concomitant]
     Indication: PROPHYLAXIS
     Dosage: 81 MG, DAILY (1/D)
     Route: 048
     Dates: start: 20070101
  18. OMEPRAZOLE [Concomitant]
     Indication: GASTROOESOPHAGEAL REFLUX DISEASE
     Dosage: 20 MG, DAILY (1/D)
     Route: 048
     Dates: start: 20020101
  19. VITAMIN B-12 [Concomitant]
     Indication: PROPHYLAXIS
     Dosage: 1000 UG, OTHER
     Route: 030
     Dates: start: 20100215

REACTIONS (11)
  - ALANINE AMINOTRANSFERASE INCREASED [None]
  - ASCITES [None]
  - ASPARTATE AMINOTRANSFERASE INCREASED [None]
  - BLOOD ALKALINE PHOSPHATASE INCREASED [None]
  - DEHYDRATION [None]
  - DIARRHOEA [None]
  - FAILURE TO THRIVE [None]
  - HAEMATOCRIT DECREASED [None]
  - HAEMOGLOBIN DECREASED [None]
  - POOR VENOUS ACCESS [None]
  - RENAL TUBULAR NECROSIS [None]
